FAERS Safety Report 7161676-1 (Version None)
Quarter: 2010Q4

REPORT INFORMATION
  Report Type: 
  Country: None (occurrence: None)
  Receive Date: 20101215
  Receipt Date: 20101208
  Transmission Date: 20110411
  Serious: Yes (Other)
  Sender: FDA-Public Use
  Company Number: US-PFIZER INC-2010167853

PATIENT
  Sex: Male
  Weight: 113.38 kg

DRUGS (7)
  1. DILANTIN [Suspect]
     Indication: CONVULSION
     Dosage: UNK
  2. PHENYTOIN [Suspect]
     Indication: CONVULSION
  3. TOPAMAX [Suspect]
     Indication: CONVULSION
     Dosage: FREQUENCY: 2X/DAY,
     Dates: start: 20100101
  4. KEPPRA [Suspect]
     Indication: CONVULSION
     Dates: start: 20100606, end: 20100616
  5. METHOTREXATE [Concomitant]
     Dosage: UNK
  6. PRAVASTATIN [Concomitant]
     Dosage: UNK
  7. FOLIC ACID [Concomitant]
     Dosage: UNK

REACTIONS (6)
  - ANTICONVULSANT DRUG LEVEL DECREASED [None]
  - BALANCE DISORDER [None]
  - DEPRESSION [None]
  - SUICIDAL IDEATION [None]
  - THERAPEUTIC AGENT TOXICITY [None]
  - THERMAL BURN [None]
